FAERS Safety Report 6756123-5 (Version None)
Quarter: 2010Q2

REPORT INFORMATION
  Report Type: 
  Country: None (occurrence: None)
  Receive Date: 20100604
  Receipt Date: 20100521
  Transmission Date: 20101027
  Serious: No
  Sender: FDA-Public Use
  Company Number: US-B.I. PHARMACEUTICALS,INC./RIDGEFIELD-2010-BP-04982BP

PATIENT
  Sex: Female

DRUGS (3)
  1. SPIRIVA [Suspect]
     Indication: CHRONIC OBSTRUCTIVE PULMONARY DISEASE
     Dosage: 18 MCG
     Route: 055
  2. CYMBALTA [Suspect]
     Indication: DEPRESSION
     Dosage: 60 MG
     Route: 048
     Dates: start: 20081001
  3. LYRICA [Suspect]
     Indication: DEPRESSION
     Dosage: 600 MG
     Route: 048
     Dates: start: 20081001

REACTIONS (1)
  - EXTRAPYRAMIDAL DISORDER [None]
